FAERS Safety Report 8319236-2 (Version None)
Quarter: 2012Q2

REPORT INFORMATION
  Report Type: 
  Country: None (occurrence: None)
  Receive Date: 20120427
  Receipt Date: 20120418
  Transmission Date: 20120825
  Serious: Yes (Other)
  Sender: FDA-Public Use
  Company Number: US-JNJFOC-20120409703

PATIENT
  Age: 9 Month
  Sex: Female
  Weight: 9.07 kg

DRUGS (2)
  1. DESITIN CREAMY DIAPER RASH OINTMENT [Suspect]
     Indication: DERMATITIS DIAPER
     Route: 061
  2. UNKNOWN MEDICATION [Concomitant]
     Route: 065

REACTIONS (3)
  - LACERATION [None]
  - HAEMORRHAGE [None]
  - CONDITION AGGRAVATED [None]
